FAERS Safety Report 9380452 (Version 1)
Quarter: 2013Q2

REPORT INFORMATION
  Report Type: Spontaneous
  Country: GB (occurrence: None)
  Receive Date: 20130628
  Receipt Date: 20130628
  Transmission Date: 20140414
  Serious: Yes (Death, Hospitalization, Other)
  Sender: FDA-Public Use
  Company Number: 2013RR-70117

PATIENT
  Age: 2 Year
  Sex: Female

DRUGS (2)
  1. CO-AMOXICLAV [Suspect]
     Indication: PRODUCT USED FOR UNKNOWN INDICATION
  2. AZITHROMYCIN [Suspect]
     Indication: PRODUCT USED FOR UNKNOWN INDICATION

REACTIONS (6)
  - Drug reaction with eosinophilia and systemic symptoms [None]
  - Pulmonary haemorrhage [None]
  - Lymphadenopathy [None]
  - Face oedema [None]
  - Cheilitis [None]
  - Erythema multiforme [None]
